FAERS Safety Report 10234938 (Version 1)
Quarter: 2014Q1

REPORT INFORMATION
  Report Type: Spontaneous
  Country: US (occurrence: None)
  Receive Date: 20140306
  Receipt Date: 20140306
  Transmission Date: 20141002
  Serious: Yes (Other)
  Sender: FDA-Public Use
  Company Number: 163-21880-13093057

PATIENT
  Age: 86 Year
  Sex: Male

DRUGS (1)
  1. REVLIMID (LENALIDOMIDE) (10 MILLIGRAM, CAPSULES) [Suspect]
     Indication: MYELODYSPLASTIC SYNDROME
     Dosage: JUL/  /2013 - DISCONTINUED
     Route: 048
     Dates: start: 201307

REACTIONS (2)
  - Pancytopenia [None]
  - Drug intolerance [None]
